FAERS Safety Report 8059919-5 (Version None)
Quarter: 2012Q1

REPORT INFORMATION
  Report Type: 
  Country: None (occurrence: None)
  Receive Date: 20120120
  Receipt Date: 20120111
  Transmission Date: 20120608
  Serious: Yes (Hospitalization)
  Sender: FDA-Public Use
  Company Number: US-BAYER-2011-075607

PATIENT
  Sex: Female
  Weight: 137.87 kg

DRUGS (3)
  1. YASMIN [Suspect]
     Dosage: UNK
     Dates: start: 20070101, end: 20070101
  2. YAZ [Suspect]
     Dosage: UNK
     Dates: start: 20070101, end: 20070101
  3. ORTHO TRI-CYCLEN [Concomitant]
     Dosage: UNK
     Dates: start: 20030101, end: 20080101

REACTIONS (1)
  - GALLBLADDER INJURY [None]
